FAERS Safety Report 4694147-2 (Version None)
Quarter: 2005Q2

REPORT INFORMATION
  Report Type: 
  Country: None (occurrence: None)
  Receive Date: 20050616
  Receipt Date: 20050616
  Transmission Date: 20051028
  Serious: Yes (Hospitalization, Disabling)
  Sender: FDA-Public Use
  Company Number: None

PATIENT
  Age: 44 Year
  Sex: Female
  Weight: 65.7716 kg

DRUGS (6)
  1. TOPAMAX [Suspect]
     Indication: DEPRESSION
     Dosage: 1 DOSE
     Dates: start: 20050530
  2. ZOLOFT [Concomitant]
  3. KLONOPIN [Concomitant]
  4. LOPRESSOR [Concomitant]
  5. PREMARIN [Concomitant]
  6. PERCOCET [Concomitant]

REACTIONS (2)
  - PHOTOSENSITIVITY REACTION [None]
  - VISION BLURRED [None]
